FAERS Safety Report 5376784-5 (Version None)
Quarter: 2007Q2

REPORT INFORMATION
  Report Type: 
  Country: None (occurrence: None)
  Receive Date: 20070530
  Receipt Date: 20070215
  Transmission Date: 20071010
  Serious: No
  Sender: FDA-Public Use
  Company Number: 2007PV030092

PATIENT
  Age: 52 Year
  Sex: Male
  Weight: 131.5431 kg

DRUGS (7)
  1. BYETTA [Suspect]
     Dosage: 10 MCG; BID; SC; 5 MCG; BID; SC
     Route: 058
     Dates: start: 20061001, end: 20061101
  2. BYETTA [Suspect]
     Dosage: 10 MCG; BID; SC; 5 MCG; BID; SC
     Route: 058
     Dates: start: 20061101
  3. HUMALOG [Concomitant]
  4. LANTUS [Concomitant]
  5. LANTUS [Concomitant]
  6. LANTUS [Concomitant]
  7. ORAL DIABETIC MEDICATION [Concomitant]

REACTIONS (5)
  - BLOOD GLUCOSE DECREASED [None]
  - FOOT FRACTURE [None]
  - HYPERHIDROSIS [None]
  - TREMOR [None]
  - WEIGHT DECREASED [None]
